FAERS Safety Report 19939802 (Version 2)
Quarter: 2021Q4

REPORT INFORMATION
  Report Type: Spontaneous
  Country: JP (occurrence: JP)
  Receive Date: 20211011
  Receipt Date: 20211118
  Transmission Date: 20220303
  Serious: Yes (Other)
  Sender: FDA-Public Use
  Company Number: JP-OTSUKA-2021_034762

PATIENT

DRUGS (3)
  1. BUSULFEX [Suspect]
     Active Substance: BUSULFAN
     Indication: Stem cell transplant
     Dosage: UNK, 4 TIMES DAILY OVER 2 HOURS ON 4 CONSECUTIVE DAYS FROM DAY -8 TO -5
     Route: 042
  2. ETOPOSIDE [Suspect]
     Active Substance: ETOPOSIDE
     Indication: Stem cell transplant
     Dosage: 60 MG/KG, ONCE DAILY OVER 12 HOURS ON DAY -4
     Route: 042
  3. CYCLOPHOSPHAMIDE [Suspect]
     Active Substance: CYCLOPHOSPHAMIDE
     Indication: Stem cell transplant
     Dosage: 60 MG/KG, ONCE DAILY OVER 2 HOURS ON DAYS -3 AND -2
     Route: 042

REACTIONS (1)
  - Pulmonary haemorrhage [Unknown]
